FAERS Safety Report 7631478-8 (Version None)
Quarter: 2011Q3

REPORT INFORMATION
  Report Type: 
  Country: None (occurrence: None)
  Receive Date: 20110725
  Receipt Date: 20110720
  Transmission Date: 20111222
  Serious: Yes (Death, Other)
  Sender: FDA-Public Use
  Company Number: US-JNJFOC-20110707419

PATIENT
  Age: 68 Year
  Sex: Male

DRUGS (2)
  1. REOPRO [Suspect]
     Indication: THROMBOSIS
     Route: 042
  2. HEPARIN [Suspect]
     Indication: THROMBOSIS
     Route: 042

REACTIONS (2)
  - SUBARACHNOID HAEMORRHAGE [None]
  - INTRAVENTRICULAR HAEMORRHAGE [None]
